FAERS Safety Report 4949719-4 (Version None)
Quarter: 2006Q1

REPORT INFORMATION
  Report Type: 
  Country: None (occurrence: None)
  Receive Date: 20060315
  Receipt Date: 20060224
  Transmission Date: 20060701
  Serious: Yes (Other)
  Sender: FDA-Public Use
  Company Number: US200602004889

PATIENT
  Sex: Male

DRUGS (2)
  1. HUMALOG [Suspect]
  2. NOVOLIN 70/30 [Concomitant]

REACTIONS (1)
  - DIALYSIS [None]
